FAERS Safety Report 10262672 (Version 2)
Quarter: 2014Q2

REPORT INFORMATION
  Report Type: Report from Study
  Country: US (occurrence: US)
  Receive Date: 20140626
  Receipt Date: 20140626
  Transmission Date: 20141212
  Serious: Yes (Life-Threatening)
  Sender: FDA-Public Use
  Company Number: US-MYLANLABS-2013S1011024

PATIENT
  Age: 59 Year
  Sex: Male
  Weight: 95.26 kg

DRUGS (18)
  1. CLOZAPINE TABLETS [Suspect]
     Indication: SCHIZOPHRENIA
     Route: 048
     Dates: end: 20130510
  2. CLOZAPINE TABLETS [Suspect]
     Indication: SCHIZOPHRENIA
     Route: 048
  3. CLOZAPINE TABLETS [Suspect]
     Indication: SCHIZOPHRENIA
     Route: 048
     Dates: end: 20130510
  4. METOPROLOL [Concomitant]
     Route: 048
  5. XOPENEX [Concomitant]
     Dosage: 2 PUFFS AT 9PM
     Route: 055
  6. MVI [Concomitant]
     Route: 048
  7. MEDROXYPROGESTERONE [Concomitant]
     Route: 048
  8. DEPAKOTE [Concomitant]
     Route: 048
  9. DOCUSATE SODIUM [Concomitant]
     Route: 048
  10. ADVAIR [Concomitant]
     Dosage: 1 PUFF BID
     Route: 055
  11. LACTULOSE [Concomitant]
     Route: 048
  12. FOSINOPRIL [Concomitant]
     Route: 048
  13. CLONAZEPAM [Concomitant]
     Route: 048
  14. ASPIRIN [Concomitant]
     Route: 048
  15. ABILIFY [Concomitant]
     Route: 048
  16. ETODOLAC [Concomitant]
     Route: 048
  17. MILK OF MAGNESIA [Concomitant]
     Route: 048
  18. TUSSIN DM [Concomitant]
     Dosage: Q8H PRN
     Route: 048

REACTIONS (1)
  - Agranulocytosis [Recovered/Resolved]
